FAERS Safety Report 4721536-X (Version None)
Quarter: 2005Q3

REPORT INFORMATION
  Report Type: 
  Country: None (occurrence: None)
  Receive Date: 20050721
  Receipt Date: 20041110
  Transmission Date: 20060218
  Serious: No
  Sender: FDA-Public Use
  Company Number: US-BRISTOL-MYERS SQUIBB COMPANY-12761391

PATIENT
  Age: 71 Year
  Sex: Male
  Weight: 91 kg

DRUGS (10)
  1. COUMADIN [Suspect]
     Indication: TRANSIENT ISCHAEMIC ATTACK
     Dosage: DOSE VALUE:  2 MG DAILY FOR 2 DAYS ALTERNATING WITH 7.5 MG DAILY FOR 5 DAYS.
     Route: 048
     Dates: end: 20041001
  2. METFORMIN HCL [Suspect]
     Indication: DIABETES MELLITUS
     Dosage: DURATION OF THERAPY:  SEVERAL YEARS
     Route: 048
  3. PLAVIX [Suspect]
     Indication: TRANSIENT ISCHAEMIC ATTACK
     Route: 048
     Dates: start: 20040101
  4. CRESTOR [Concomitant]
     Route: 048
  5. DIOVAN [Concomitant]
     Route: 048
  6. NIFEDICAL [Concomitant]
     Route: 048
  7. AMARYL [Concomitant]
  8. RANIDINE [Concomitant]
     Route: 048
  9. OMEGA-3 [Concomitant]
     Route: 048
  10. THIAMINE HCL [Concomitant]
     Route: 048

REACTIONS (2)
  - HAEMATOCHEZIA [None]
  - RECTAL HAEMORRHAGE [None]
